FAERS Safety Report 10594145 (Version 1)
Quarter: 2014Q4

REPORT INFORMATION
  Report Type: Spontaneous
  Country: US (occurrence: US)
  Receive Date: 20141119
  Receipt Date: 20141119
  Transmission Date: 20150529
  Serious: Yes (Hospitalization)
  Sender: FDA-Public Use
  Company Number: US-FRI-1000072267

PATIENT
  Age: 12 Year
  Sex: Female
  Weight: 62.6 kg

DRUGS (2)
  1. ABILIFY [Suspect]
     Active Substance: ARIPIPRAZOLE
     Indication: ANGER
     Dosage: 3 MG
     Route: 048
     Dates: start: 201401, end: 201405
  2. LEXAPRO [Suspect]
     Active Substance: ESCITALOPRAM OXALATE
     Indication: BIPOLAR DISORDER
     Route: 048
     Dates: start: 201304, end: 201405

REACTIONS (8)
  - Headache [Recovered/Resolved]
  - Unevaluable event [Recovered/Resolved]
  - Mania [Unknown]
  - Anger [Unknown]
  - Weight increased [Not Recovered/Not Resolved]
  - Drug level above therapeutic [Unknown]
  - Cyst [Unknown]
  - Off label use [Recovered/Resolved]
